FAERS Safety Report 19513919 (Version 1)
Quarter: 2021Q3

REPORT INFORMATION
  Report Type: Report from Study
  Country: CA (occurrence: CA)
  Receive Date: 20210709
  Receipt Date: 20210709
  Transmission Date: 20211014
  Serious: Yes (Other)
  Sender: FDA-Public Use
  Company Number: PHHY2015CA002088

PATIENT
  Age: 42 Year
  Sex: Female

DRUGS (3)
  1. GILENYA [Suspect]
     Active Substance: FINGOLIMOD HYDROCHLORIDE
     Indication: RELAPSING-REMITTING MULTIPLE SCLEROSIS
     Dosage: UNK, QD
     Route: 048
     Dates: start: 20141215
  2. CALTRATE [Concomitant]
     Active Substance: CALCIUM CARBONATE
     Indication: PROPHYLAXIS
     Dosage: UNK
     Route: 065
     Dates: start: 20171120, end: 20180430
  3. GILENYA [Suspect]
     Active Substance: FINGOLIMOD HYDROCHLORIDE
     Dosage: UNK (EACH OTHER DAY)
     Route: 048
     Dates: start: 202104, end: 20210630

REACTIONS (38)
  - Anxiety [Unknown]
  - Breast pain [Recovered/Resolved]
  - Dry eye [Recovered/Resolved]
  - Gingival recession [Recovered/Resolved]
  - Tachycardia [Recovered/Resolved]
  - Hernia [Unknown]
  - Nephrolithiasis [Unknown]
  - Myalgia [Unknown]
  - Gastrooesophageal reflux disease [Recovered/Resolved]
  - Tooth disorder [Unknown]
  - Dental caries [Recovered/Resolved]
  - Headache [Recovered/Resolved]
  - Scoliosis [Unknown]
  - Ligament sprain [Recovered/Resolved]
  - Type 2 diabetes mellitus [Unknown]
  - Blood glucose increased [Recovered/Resolved]
  - Influenza [Recovered/Resolved]
  - Eczema [Recovered/Resolved]
  - Mechanical urticaria [Unknown]
  - Anal fissure [Unknown]
  - Skin discolouration [Unknown]
  - Vaginal infection [Recovered/Resolved]
  - Spinal osteoarthritis [Unknown]
  - Neurodermatitis [Recovered/Resolved]
  - Hepatic steatosis [Unknown]
  - Lymphopenia [Unknown]
  - Lichenification [Recovered/Resolved]
  - Eczema [Recovered/Resolved]
  - Mucosal discolouration [Unknown]
  - Melanocytic naevus [Recovered/Resolved]
  - Ovarian cyst [Unknown]
  - Pain in extremity [Unknown]
  - Breast pain [Unknown]
  - Off label use [Unknown]
  - Oropharyngeal pain [Recovered/Resolved]
  - Eczema [Recovered/Resolved]
  - Contusion [Recovered/Resolved]
  - Mechanical urticaria [Recovered/Resolved]

NARRATIVE: CASE EVENT DATE: 20141215
